FAERS Safety Report 17674182 (Version 5)
Quarter: 2020Q2

REPORT INFORMATION
  Report Type: Spontaneous
  Country: US (occurrence: US)
  Receive Date: 20200416
  Receipt Date: 20200611
  Transmission Date: 20200714
  Serious: Yes (Other)
  Sender: FDA-Public Use
  Company Number: US-GLAXOSMITHKLINE-US2020AMR064583

PATIENT
  Sex: Female

DRUGS (4)
  1. ZEJULA [Suspect]
     Active Substance: NIRAPARIB
     Dosage: 200 MG
     Dates: start: 20200310
  2. BACTRIM [Concomitant]
     Active Substance: SULFAMETHOXAZOLE\TRIMETHOPRIM
     Indication: STAPHYLOCOCCAL INFECTION
     Dosage: UNK
  3. ZEJULA [Suspect]
     Active Substance: NIRAPARIB
     Indication: OVARIAN CANCER
     Dosage: 300 MG
     Dates: start: 20200225
  4. ZEJULA [Suspect]
     Active Substance: NIRAPARIB
     Dosage: 300 MG, QD
     Dates: start: 20200310

REACTIONS (12)
  - Nausea [Unknown]
  - Blood pressure increased [Unknown]
  - Thrombosis [Unknown]
  - Peripheral swelling [Unknown]
  - Fatigue [Unknown]
  - Heart rate increased [Unknown]
  - Pain in extremity [Recovering/Resolving]
  - Malaise [Unknown]
  - Carbohydrate antigen 125 increased [Unknown]
  - Feeling abnormal [Unknown]
  - Skin mass [Unknown]
  - Feeling hot [Unknown]
